FAERS Safety Report 21696884 (Version 2)
Quarter: 2023Q1

REPORT INFORMATION
  Report Type: Spontaneous
  Country: US (occurrence: US)
  Receive Date: 20221208
  Receipt Date: 20230303
  Transmission Date: 20230417
  Serious: No
  Sender: FDA-Public Use
  Company Number: US-BRISTOL-MYERS SQUIBB COMPANY-2022-149770

PATIENT
  Age: 78 Year
  Sex: Female
  Weight: 64.86 kg

DRUGS (1)
  1. POMALYST [Suspect]
     Active Substance: POMALIDOMIDE
     Indication: Plasma cell myeloma
     Dosage: FREQ: 3W ON 1W OFF
     Route: 048

REACTIONS (2)
  - Tooth disorder [Unknown]
  - Coronavirus infection [Recovered/Resolved]
